FAERS Safety Report 22133201 (Version 1)
Quarter: 2023Q1

REPORT INFORMATION
  Report Type: Spontaneous
  Country: RS (occurrence: RS)
  Receive Date: 20230324
  Receipt Date: 20230324
  Transmission Date: 20230417
  Serious: Yes (Other)
  Sender: FDA-Public Use
  Company Number: RS-STRIDES ARCOLAB LIMITED-2023SP004317

PATIENT
  Age: 8 Year
  Sex: Female

DRUGS (5)
  1. ALBENDAZOLE [Suspect]
     Active Substance: ALBENDAZOLE
     Indication: Enterobiasis
     Dosage: UNK (THIRD DOSES)
     Route: 065
  2. URSODIOL [Suspect]
     Active Substance: URSODIOL
     Indication: Transaminases increased
     Dosage: UNK
     Route: 065
  3. URSODIOL [Suspect]
     Active Substance: URSODIOL
     Indication: Cholestasis
  4. PREDNISOLONE [Concomitant]
     Active Substance: PREDNISOLONE
     Indication: Transaminases increased
     Dosage: UNK
     Route: 065
  5. PREDNISOLONE [Concomitant]
     Active Substance: PREDNISOLONE
     Indication: Cholestasis
     Dosage: UNK GRADUALLY DECREASED
     Route: 065

REACTIONS (3)
  - Immune-mediated hepatitis [Recovered/Resolved]
  - Hepatitis toxic [Recovered/Resolved]
  - Off label use [Unknown]
